FAERS Safety Report 8923777 (Version 1)
Quarter: 2012Q4

REPORT INFORMATION
  Report Type: 
  Country: CN (occurrence: CN)
  Receive Date: 20121126
  Receipt Date: 20121126
  Transmission Date: 20130627
  Serious: Yes (Other)
  Sender: FDA-Public Use
  Company Number: CN-009507513-1211CHN009944

PATIENT
  Age: 10 Year
  Sex: Male
  Weight: 40 kg

DRUGS (3)
  1. CLARITYNE [Suspect]
     Indication: NASOPHARYNGITIS
     Dosage: 7.5 mg, qd
     Route: 048
     Dates: start: 20100121, end: 20100302
  2. SINGULAIR [Suspect]
     Indication: NASOPHARYNGITIS
     Dosage: 7.5 mg, qd
     Route: 048
     Dates: start: 20100121, end: 20100302
  3. CEFACLOR [Concomitant]
     Indication: NASOPHARYNGITIS
     Dosage: UNK
     Route: 048
     Dates: start: 20100121, end: 20100125

REACTIONS (1)
  - Alanine aminotransferase increased [Recovered/Resolved]
